FAERS Safety Report 18763020 (Version 1)
Quarter: 2021Q1

REPORT INFORMATION
  Report Type: Spontaneous
  Country: FR (occurrence: FR)
  Receive Date: 20210120
  Receipt Date: 20210120
  Transmission Date: 20210419
  Serious: Yes (Life-Threatening, Hospitalization)
  Sender: FDA-Public Use
  Company Number: FR-MYLANLABS-2021M1003373

PATIENT
  Age: 72 Year
  Sex: Female

DRUGS (12)
  1. TWYNSTA [Suspect]
     Active Substance: AMLODIPINE BESYLATE\TELMISARTAN
     Indication: PRODUCT USED FOR UNKNOWN INDICATION
     Dosage: 1 DOSAGE FORM, QD
     Route: 065
  2. TENORETIC [Suspect]
     Active Substance: ATENOLOL\CHLORTHALIDONE
     Indication: PRODUCT USED FOR UNKNOWN INDICATION
     Dosage: 1 DOSAGE FORM, QD IN THE MORNING
     Route: 065
  3. FLUOROURACIL. [Suspect]
     Active Substance: FLUOROURACIL
     Indication: COLON CANCER
     Dosage: 400 MILLIGRAM/SQ. METER
     Dates: start: 20190422
  4. MAG 2                              /00454301/ [Concomitant]
     Active Substance: MAGNESIUM CARBONATE
     Indication: PRODUCT USED FOR UNKNOWN INDICATION
     Dosage: 2 DOSAGE FORM, BID...
     Route: 048
     Dates: start: 20190917
  5. OXALIPLATIN. [Concomitant]
     Active Substance: OXALIPLATIN
     Indication: COLON CANCER
     Dosage: 85 MILLIGRAM/SQ. METER
     Dates: start: 20190822
  6. OXALIPLATIN. [Concomitant]
     Active Substance: OXALIPLATIN
     Dosage: 165 MILLIGRAM TWO HOURS
     Dates: start: 20190919
  7. PANITUMUMAB [Suspect]
     Active Substance: PANITUMUMAB
     Indication: COLON CANCER
     Dosage: 6 MILLIGRAM/KILOGRAM
     Route: 065
     Dates: start: 20190905
  8. FLUOROURACIL. [Suspect]
     Active Substance: FLUOROURACIL
     Dosage: 2400 MILLIGRAM/SQ. METER DIFFUSER
     Route: 065
     Dates: start: 2019
  9. LEVOTHYROX [Suspect]
     Active Substance: LEVOTHYROXINE
     Indication: PRODUCT USED FOR UNKNOWN INDICATION
     Dosage: 87.7 MICROGRAM IN THE MORNING
     Route: 065
  10. FLUOROURACIL. [Suspect]
     Active Substance: FLUOROURACIL
     Dosage: 775 MILLIGRAM FOR 10 MINUTES
     Dates: start: 20190919
  11. PANITUMUMAB [Suspect]
     Active Substance: PANITUMUMAB
     Dosage: 540 MILLIGRAM FOR 1 HOUR
     Route: 065
     Dates: start: 2019
  12. TAHOR [Concomitant]
     Active Substance: ATORVASTATIN CALCIUM
     Indication: PRODUCT USED FOR UNKNOWN INDICATION
     Dosage: 10 MILLIGRAM, QD IN THE EVENING
     Route: 065

REACTIONS (6)
  - Hypocalcaemia [Recovered/Resolved]
  - Acute respiratory distress syndrome [Recovered/Resolved]
  - Condition aggravated [Recovered/Resolved]
  - Hypomagnesaemia [Recovered/Resolved]
  - Respiratory arrest [Recovered/Resolved]
  - Hypokalaemia [Recovered/Resolved]

NARRATIVE: CASE EVENT DATE: 2019
